FAERS Safety Report 20340711 (Version 1)
Quarter: 2022Q1

REPORT INFORMATION
  Report Type: Spontaneous
  Country: CN (occurrence: CN)
  Receive Date: 20220117
  Receipt Date: 20220117
  Transmission Date: 20220423
  Serious: Yes (Hospitalization)
  Sender: FDA-Public Use
  Company Number: CN-PFIZER INC-202200028516

PATIENT
  Age: 44 Year
  Sex: Male
  Weight: 65 kg

DRUGS (5)
  1. VENLAFAXINE HCL [Suspect]
     Active Substance: VENLAFAXINE HYDROCHLORIDE
     Indication: Depression
     Dosage: 150 MG, 1X/DAY
     Route: 048
     Dates: start: 20211214, end: 20211231
  2. TANDOSPIRONE CITRATE [Suspect]
     Active Substance: TANDOSPIRONE CITRATE
     Indication: Depression
     Dosage: UNK
     Dates: start: 20211130
  3. TANDOSPIRONE CITRATE [Suspect]
     Active Substance: TANDOSPIRONE CITRATE
     Dosage: 10 MG, 3X/DAY
     Route: 048
     Dates: start: 20211214, end: 20211224
  4. VENLAFAXINE HCL [Suspect]
     Active Substance: VENLAFAXINE HYDROCHLORIDE
     Indication: Depression
     Dosage: 75 MG, 1X/DAY
     Route: 048
     Dates: start: 20211214, end: 20211231
  5. TRAZODONE HCL [Suspect]
     Active Substance: TRAZODONE HYDROCHLORIDE
     Indication: Depression
     Dosage: 50 MG, 1X/DAY
     Route: 048
     Dates: start: 20211214, end: 20211231

REACTIONS (3)
  - Liver injury [Recovering/Resolving]
  - Nausea [Recovering/Resolving]
  - Vomiting [Recovering/Resolving]

NARRATIVE: CASE EVENT DATE: 20211224
